FAERS Safety Report 4741735-0 (Version None)
Quarter: 2005Q3

REPORT INFORMATION
  Report Type: 
  Country: None (occurrence: None)
  Receive Date: 20050808
  Receipt Date: 20050725
  Transmission Date: 20060218
  Serious: Yes (Life-Threatening, Hospitalization)
  Sender: FDA-Public Use
  Company Number: SUS1-2005-00494

PATIENT
  Age: 71 Year
  Sex: Male
  Weight: 86.1 kg

DRUGS (11)
  1. LANTANUM CARBONATE [Suspect]
     Indication: HYPERPHOSPHATAEMIA
     Dosage: 1500 MG, 3X/DAY: TID, ORAL
     Route: 048
     Dates: start: 20041101, end: 20050716
  2. BISOPROLOL FUMARATE [Concomitant]
  3. NITREPRESS (NITRENDIPINE) [Concomitant]
  4. ATORVASTATIN CALCIUM [Concomitant]
  5. ALLOPURINOL [Concomitant]
  6. MAGNEMED   (MAGNESIUM HYDROGEN ASPARTATE) TABLET [Concomitant]
  7. AQUAPHOR                              (PETROLATUM) [Concomitant]
  8. TOREM/GFR/ (TORASEMIDE) [Concomitant]
  9. INSUMAN BASAL /NET/ (ISOPHANE INSULIN) [Concomitant]
  10. INSUMAN RAPID                         /GFR/ (INSULIN HUMAN) [Concomitant]
  11. CALCIUM ACETATE    (CALCIUM ACETATE) [Concomitant]

REACTIONS (11)
  - ARRHYTHMIA [None]
  - BLOOD LACTIC ACID INCREASED [None]
  - BRADYCARDIA [None]
  - CATHETER SITE INFLAMMATION [None]
  - FAECALOMA [None]
  - FALL [None]
  - INTESTINAL ISCHAEMIA [None]
  - INTESTINAL OBSTRUCTION [None]
  - MUSCLE STRAIN [None]
  - PERITONITIS [None]
  - WRONG TECHNIQUE IN DRUG USAGE PROCESS [None]
